FAERS Safety Report 8926442 (Version 1)
Quarter: 2012Q4

REPORT INFORMATION
  Report Type: 
  Country: GB (occurrence: GB)
  Receive Date: 20121127
  Receipt Date: 20121127
  Transmission Date: 20130627
  Serious: Yes (Life-Threatening, Hospitalization)
  Sender: FDA-Public Use
  Company Number: GB-ASTRAZENECA-2012SE89116

PATIENT
  Age: 48 Year
  Sex: Male

DRUGS (2)
  1. TICAGRELOR [Suspect]
     Indication: CORONARY ARTERIAL STENT INSERTION
     Route: 048
     Dates: start: 20120907, end: 20121106
  2. TICAGRELOR [Suspect]
     Indication: MYOCARDIAL INFARCTION
     Route: 048
     Dates: start: 20120907, end: 20121106

REACTIONS (1)
  - Cardiac arrest [Recovered/Resolved]
